FAERS Safety Report 21638362 (Version 1)
Quarter: 2022Q4

REPORT INFORMATION
  Report Type: Report from Study
  Country: US (occurrence: US)
  Receive Date: 20221124
  Receipt Date: 20221124
  Transmission Date: 20230112
  Serious: Yes (Hospitalization, Other)
  Sender: FDA-Public Use
  Company Number: US-ALNYLAM PHARMACEUTICALS, INC.-ALN-2022-004225

PATIENT

DRUGS (1)
  1. ONPATTRO [Suspect]
     Active Substance: PATISIRAN SODIUM
     Indication: Hereditary neuropathic amyloidosis
     Dosage: UNK

REACTIONS (36)
  - Necrobiosis lipoidica diabeticorum [Unknown]
  - Localised infection [Unknown]
  - Pain in extremity [Unknown]
  - Clostridium difficile infection [Unknown]
  - Acute kidney injury [Unknown]
  - Muscle spasms [Unknown]
  - Gait disturbance [Unknown]
  - Arthralgia [Unknown]
  - Abdominal discomfort [Unknown]
  - Dizziness [Unknown]
  - Pain [Unknown]
  - Musculoskeletal stiffness [Unknown]
  - Pain in extremity [Unknown]
  - Somnolence [Unknown]
  - Rash [Recovering/Resolving]
  - Back pain [Unknown]
  - Balance disorder [Unknown]
  - Swelling [Unknown]
  - Joint swelling [Unknown]
  - Bronchitis [Unknown]
  - Crohn^s disease [Unknown]
  - Vasculitis [Unknown]
  - Neuralgia [Unknown]
  - Hypoaesthesia [Unknown]
  - Chest pain [Unknown]
  - Dysstasia [Unknown]
  - Paraesthesia [Unknown]
  - Foot deformity [Unknown]
  - Superficial inflammatory dermatosis [Unknown]
  - Skin fibrosis [Unknown]
  - Collagen disorder [Unknown]
  - Fat necrosis [Unknown]
  - Prealbumin abnormal [Unknown]
  - Anti-thyroid antibody increased [Unknown]
  - Morphoea [Unknown]
  - Undifferentiated connective tissue disease [Unknown]
